FAERS Safety Report 8827032 (Version 5)
Quarter: 2013Q4

REPORT INFORMATION
  Report Type: Report from Study
  Country: MX (occurrence: MX)
  Receive Date: 20121005
  Receipt Date: 20131002
  Transmission Date: 20140711
  Serious: Yes (Death, Life-Threatening, Hospitalization, Disabling)
  Sender: FDA-Public Use
  Company Number: MX-JNJFOC-20121002578

PATIENT
  Age: 67 Year
  Sex: Male

DRUGS (8)
  1. ABIRATERONE ACETATE [Suspect]
     Route: 048
  2. ABIRATERONE ACETATE [Suspect]
     Indication: PROSTATE CANCER METASTATIC
     Route: 048
     Dates: start: 20120124, end: 20120907
  3. PREDNISONE [Suspect]
     Indication: PROSTATE CANCER METASTATIC
     Route: 048
     Dates: start: 20120123, end: 20120906
  4. MORPHINE [Concomitant]
     Indication: PAIN
     Route: 048
     Dates: start: 20120721, end: 20120906
  5. MORPHINE [Concomitant]
     Indication: PAIN
     Route: 048
     Dates: start: 20120710, end: 20120920
  6. MORPHINE SULPHATE [Concomitant]
     Route: 048
     Dates: start: 201007
  7. PHENYTOIN [Concomitant]
     Indication: PAIN
     Route: 048
     Dates: start: 20100710
  8. DICLOFENAC [Concomitant]
     Route: 048
     Dates: start: 20100710

REACTIONS (1)
  - Thrombocytopenia [Fatal]
